FAERS Safety Report 15744570 (Version 1)
Quarter: 2018Q4

REPORT INFORMATION
  Report Type: Spontaneous
  Country: US (occurrence: US)
  Receive Date: 20181205
  Receipt Date: 20181205
  Transmission Date: 20190205
  Serious: Yes (Hospitalization)
  Sender: FDA-Public Use
  Company Number: None

PATIENT
  Age: 34 Year
  Sex: Female
  Weight: 76.3 kg

DRUGS (2)
  1. IFOSFAMIDE. [Concomitant]
     Active Substance: IFOSFAMIDE
  2. PAZOPANIB (GW786034) [Suspect]
     Active Substance: PAZOPANIB
     Dates: start: 20181111

REACTIONS (6)
  - Vomiting [None]
  - Tachycardia [None]
  - Chest pain [None]
  - Neutropenia [None]
  - Nausea [None]
  - Hypokalaemia [None]

NARRATIVE: CASE EVENT DATE: 20181129
